FAERS Safety Report 4693753-9 (Version None)
Quarter: 2005Q2

REPORT INFORMATION
  Report Type: 
  Country: None (occurrence: None)
  Receive Date: 20050615
  Receipt Date: 20050524
  Transmission Date: 20051028
  Serious: Yes (Life-Threatening, Hospitalization)
  Sender: FDA-Public Use
  Company Number: WAES 0505DEU00087

PATIENT
  Age: 75 Year
  Sex: Male

DRUGS (6)
  1. COZAAR [Suspect]
     Indication: HYPERTENSION
     Dosage: 50 MG/DAILY PO
     Route: 048
     Dates: start: 20040402, end: 20041204
  2. HYZAAR [Suspect]
     Indication: HYPERTENSION
     Dosage: 50-12.5 MG/DAILY PO
     Route: 048
     Dates: start: 20040402, end: 20041204
  3. ALLOPURINOL [Concomitant]
  4. ASPIRIN [Concomitant]
  5. MOLSIDOMINE [Concomitant]
  6. STATIN [Concomitant]

REACTIONS (3)
  - ARRHYTHMIA [None]
  - DIALYSIS [None]
  - RENAL FAILURE ACUTE [None]
